FAERS Safety Report 8559783-1 (Version None)
Quarter: 2012Q3

REPORT INFORMATION
  Report Type: 
  Country: None (occurrence: None)
  Receive Date: 20120802
  Receipt Date: 20120801
  Transmission Date: 20120928
  Serious: No
  Sender: FDA-Public Use
  Company Number: US-PFIZER INC-2012187147

PATIENT
  Sex: Female
  Weight: 99.773 kg

DRUGS (5)
  1. PRISTIQ [Suspect]
     Indication: DEPRESSION
  2. INDERAL [Concomitant]
     Indication: HYPERTENSION
     Dosage: UNK
  3. PROTONIX [Concomitant]
     Indication: GASTROOESOPHAGEAL REFLUX DISEASE
     Dosage: UNK
  4. ABILIFY [Concomitant]
     Indication: ANXIETY
     Dosage: UNK
  5. PRISTIQ [Suspect]
     Indication: ANXIETY
     Dosage: 50 MG, 1X/DAY
     Route: 048
     Dates: start: 20120601

REACTIONS (1)
  - HYPERHIDROSIS [None]
